FAERS Safety Report 5235207-7 (Version None)
Quarter: 2007Q1

REPORT INFORMATION
  Report Type: 
  Country: None (occurrence: None)
  Receive Date: 20070208
  Receipt Date: 20070208
  Transmission Date: 20070707
  Serious: Yes (Other)
  Sender: FDA-Public Use
  Company Number: None

PATIENT
  Sex: Male
  Weight: 95.2554 kg

DRUGS (2)
  1. RISPERDAL CONSTA [Suspect]
     Indication: DISEASE RECURRENCE
     Dosage: 50 MG IM Q2WEEKS
     Route: 030
     Dates: start: 20050801, end: 20051215
  2. RISPERDAL CONSTA [Suspect]
     Indication: SCHIZOPHRENIA, PARANOID TYPE
     Dosage: 50 MG IM Q2WEEKS
     Route: 030
     Dates: start: 20050801, end: 20051215

REACTIONS (5)
  - COGWHEEL RIGIDITY [None]
  - GLOSSOPTOSIS [None]
  - REFUSAL OF TREATMENT BY PATIENT [None]
  - TARDIVE DYSKINESIA [None]
  - TREATMENT NONCOMPLIANCE [None]
